FAERS Safety Report 4392857-8 (Version None)
Quarter: 2004Q3

REPORT INFORMATION
  Report Type: 
  Country: None (occurrence: None)
  Receive Date: 20040702
  Receipt Date: 20040318
  Transmission Date: 20050211
  Serious: Yes (Other)
  Sender: FDA-Public Use
  Company Number: 2004UW05243

PATIENT
  Age: 55 Year
  Sex: Female
  Weight: 86.1834 kg

DRUGS (4)
  1. CRESTOR [Suspect]
     Indication: BLOOD CHOLESTEROL INCREASED
     Dosage: 10 MG PO
     Route: 048
  2. LEVOTHYROID [Concomitant]
  3. LISINOPRIL [Concomitant]
  4. PRILOSEC [Concomitant]

REACTIONS (3)
  - COUGH [None]
  - OROPHARYNGEAL SWELLING [None]
  - RASH [None]
